FAERS Safety Report 4462354-X (Version None)
Quarter: 2004Q3

REPORT INFORMATION
  Report Type: 
  Country: None (occurrence: None)
  Receive Date: 20040924
  Receipt Date: 20040902
  Transmission Date: 20050211
  Serious: Yes (Life-Threatening)
  Sender: FDA-Public Use
  Company Number: 04H-163-0274002-00

PATIENT

DRUGS (2)
  1. DOPAMINE HCL [Suspect]
     Dosage: INTRAVENOUS
     Route: 042
     Dates: start: 20040601
  2. EPINEPHRINE [Suspect]
     Dosage: INTRAVENOUS
     Route: 042
     Dates: start: 20040601

REACTIONS (3)
  - BLOOD PRESSURE DECREASED [None]
  - COMA [None]
  - DEVICE FAILURE [None]
